FAERS Safety Report 9606027 (Version 2)
Quarter: 2017Q4

REPORT INFORMATION
  Report Type: Report from Study
  Country: US (occurrence: US)
  Receive Date: 20131008
  Receipt Date: 20171018
  Transmission Date: 20180321
  Serious: No
  Sender: FDA-Public Use
  Company Number: US-AMGEN-USASP2013039018

PATIENT
  Age: 63 Year
  Sex: Female

DRUGS (6)
  1. FLUOROURACIL. [Concomitant]
     Active Substance: FLUOROURACIL
     Route: 061
  2. CALCIUM D [Concomitant]
     Active Substance: CALCIUM\VITAMIN D
     Dosage: 600 MG, BID
  3. CALCIUM D [Concomitant]
     Active Substance: CALCIUM\VITAMIN D
     Dosage: UNK UNK, QD
  4. PROLIA [Suspect]
     Active Substance: DENOSUMAB
     Indication: OSTEOPOROSIS POSTMENOPAUSAL
     Dosage: 60 MG, Q6MO
     Route: 065
  5. VITAMIN D [Concomitant]
     Active Substance: CHOLECALCIFEROL
     Dosage: UNK UNK, QD
  6. VITAMIN D [Concomitant]
     Active Substance: CHOLECALCIFEROL
     Dosage: 800 IU, UNK

REACTIONS (2)
  - Paraesthesia [Recovered/Resolved]
  - Drug dose omission [Unknown]
